FAERS Safety Report 18386342 (Version 1)
Quarter: 2020Q4

REPORT INFORMATION
  Report Type: Spontaneous
  Country: US (occurrence: US)
  Receive Date: 20201014
  Receipt Date: 20201014
  Transmission Date: 20210114
  Serious: No
  Sender: FDA-Public Use
  Company Number: None

PATIENT
  Age: 55 Year
  Sex: Female

DRUGS (2)
  1. TASIGNA [Suspect]
     Active Substance: NILOTINIB
     Indication: LEUKAEMIA
     Route: 048
     Dates: start: 20201001, end: 20201010
  2. TASIGNA [Concomitant]
     Active Substance: NILOTINIB
     Dates: start: 20201001, end: 20201010

REACTIONS (3)
  - Abdominal pain [None]
  - Constipation [None]
  - Therapy interrupted [None]

NARRATIVE: CASE EVENT DATE: 20201010
